FAERS Safety Report 8447799-5 (Version None)
Quarter: 2012Q2

REPORT INFORMATION
  Report Type: 
  Country: None (occurrence: None)
  Receive Date: 20120619
  Receipt Date: 20120615
  Transmission Date: 20120825
  Serious: Yes (Death)
  Sender: FDA-Public Use
  Company Number: PE-ASTRAZENECA-2012SE40185

PATIENT
  Age: 76 Year
  Sex: Male

DRUGS (1)
  1. CRESTOR [Suspect]
     Indication: HYPERCHOLESTEROLAEMIA
     Dosage: DAILY
     Route: 048
     Dates: start: 20110601

REACTIONS (1)
  - PROSTATE CANCER [None]
